FAERS Safety Report 11196691 (Version 3)
Quarter: 2015Q3

REPORT INFORMATION
  Report Type: Spontaneous
  Country: US (occurrence: US)
  Receive Date: 20150617
  Receipt Date: 20150807
  Transmission Date: 20151125
  Serious: Yes (Death, Hospitalization)
  Sender: FDA-Public Use
  Company Number: US-PFIZER INC-2015199788

PATIENT
  Age: 63 Year
  Sex: Female
  Weight: 50 kg

DRUGS (1)
  1. RELPAX [Suspect]
     Active Substance: ELETRIPTAN HYDROBROMIDE
     Dosage: UNK

REACTIONS (4)
  - Aortic valve disease [Unknown]
  - Cardiac procedure complication [Fatal]
  - Arrhythmia [Unknown]
  - Thrombosis [Unknown]
